FAERS Safety Report 18426639 (Version 1)
Quarter: 2020Q4

REPORT INFORMATION
  Report Type: Spontaneous
  Country: US (occurrence: US)
  Receive Date: 20201026
  Receipt Date: 20201026
  Transmission Date: 20210114
  Serious: Yes (Other)
  Sender: FDA-Public Use
  Company Number: None

PATIENT
  Age: 85 Year
  Sex: Female
  Weight: 54 kg

DRUGS (16)
  1. PROCRIT [Suspect]
     Active Substance: ERYTHROPOIETIN
     Indication: ANAEMIA
     Dosage: 20,000 UNK - UNKNOWN
     Route: 058
     Dates: start: 20171110, end: 20201026
  2. HYDRALAZINE 25MG [Concomitant]
     Active Substance: HYDRALAZINE HYDROCHLORIDE
  3. VITAMIN B12 250MCG [Concomitant]
  4. OMEPRAZOLE 20MG [Concomitant]
     Active Substance: OMEPRAZOLE
  5. HUMALOG MIX75/25 [Concomitant]
     Active Substance: INSULIN LISPRO
  6. FOLIC ACID 1MG [Concomitant]
     Active Substance: FOLIC ACID
  7. LEVOTHYROXINE 100MCG [Concomitant]
     Active Substance: LEVOTHYROXINE
  8. TESSALON PERLES 100MG [Concomitant]
  9. CIPROFLOXACIN 250MG [Concomitant]
     Active Substance: CIPROFLOXACIN
  10. AMLODIPINE [Concomitant]
     Active Substance: AMLODIPINE BESYLATE
  11. LANTUS SOLOSTAR 100UNIT/ML [Concomitant]
  12. PROCRIT [Suspect]
     Active Substance: ERYTHROPOIETIN
     Indication: ANAEMIA
     Dosage: ?          OTHER FREQUENCY:WEEKLY;?STRENGTH: 40000 UNK - UNKNOWN?
     Route: 058
     Dates: start: 20171110, end: 20201026
  13. NADOLOL 20MG [Concomitant]
  14. OYSCO 500+D 500-600MG [Concomitant]
  15. VITAMIN D 50,000UNIT [Concomitant]
  16. GABAPENTIN 100MG [Concomitant]
     Active Substance: GABAPENTIN

REACTIONS (1)
  - Hospice care [None]
